FAERS Safety Report 6247622-3 (Version None)
Quarter: 2009Q2

REPORT INFORMATION
  Report Type: 
  Country: None (occurrence: None)
  Receive Date: 20090626
  Receipt Date: 20090616
  Transmission Date: 20091009
  Serious: Yes (Hospitalization, Other)
  Sender: FDA-Public Use
  Company Number: FR-PFIZER INC-2008155328

PATIENT
  Age: 53 Year

DRUGS (6)
  1. LYRICA [Suspect]
     Indication: PAIN
     Dosage: 1 DF, 3X/DAY
     Dates: start: 20081001, end: 20081202
  2. LYRICA [Suspect]
     Indication: ANXIETY
  3. ANTIDEPRESSANTS [Concomitant]
  4. DI-ANTALVIC [Concomitant]
  5. ACENOCOUMAROL [Concomitant]
  6. CHEMOTHERAPY NOS [Concomitant]
     Dosage: EVERY 15 DAYS

REACTIONS (2)
  - BREAST CANCER FEMALE [None]
  - DIPLOPIA [None]
